FAERS Safety Report 23910518 (Version 1)
Quarter: 2024Q2

REPORT INFORMATION
  Report Type: Spontaneous
  Country: NO (occurrence: NO)
  Receive Date: 20240528
  Receipt Date: 20240528
  Transmission Date: 20240715
  Serious: Yes (Hospitalization)
  Sender: FDA-Public Use
  Company Number: NO-PURDUE-USA-2024-0309833

PATIENT
  Age: 67 Year
  Sex: Female
  Weight: 54 kg

DRUGS (7)
  1. NORSPAN [Interacting]
     Active Substance: BUPRENORPHINE
     Indication: Fibromyalgia
     Dosage: 5 MICROGRAMS/HOUR. STARTED ON LYRICA AND NORSPAN DURING TRAMADOL DOSE REDUCTION,
     Route: 065
     Dates: start: 20240402, end: 20240413
  2. NORSPAN [Interacting]
     Active Substance: BUPRENORPHINE
     Indication: Pain
  3. TRAMADOL [Interacting]
     Active Substance: TRAMADOL\TRAMADOL HYDROCHLORIDE
     Indication: Fibromyalgia
     Dosage: PLANNED DOSE REDUCTION WITH GP. TIME FRAME OR DOSE REDUCTIONS NOT SPECIFIED IN THE REPORT. BEFORE DI
     Route: 048
     Dates: start: 19800101, end: 20240413
  4. TRAMADOL [Interacting]
     Active Substance: TRAMADOL\TRAMADOL HYDROCHLORIDE
     Indication: Pain
     Dosage: 50 MILLIGRAM, Q8H  (STABILISED DURING HOSPITAL ADMISSION.)
     Route: 065
     Dates: start: 20240425
  5. TRAMADOL [Interacting]
     Active Substance: TRAMADOL\TRAMADOL HYDROCHLORIDE
     Dosage: 50 MILLIGRAM, Q6H (200 MG DIVIDED IN 4 DAILY DOSES.)
     Route: 065
     Dates: start: 20240419, end: 20240425
  6. ZOLPIDEM TARTRATE [Concomitant]
     Active Substance: ZOLPIDEM TARTRATE
     Indication: Insomnia
     Dosage: UNK
     Route: 065
  7. LYRICA [Concomitant]
     Active Substance: PREGABALIN
     Indication: Product used for unknown indication
     Dosage: STARTED ON LYRICA AND NORSPAN DURING TRAMADOL DOSE REDUCTION. DOSE AND TIME FRAME FOR LYRICA NOT FUR
     Route: 065

REACTIONS (8)
  - General physical health deterioration [Recovering/Resolving]
  - Dyspnoea [Recovering/Resolving]
  - Palpitations [Recovering/Resolving]
  - Drug interaction [Recovering/Resolving]
  - Fatigue [Recovering/Resolving]
  - Nausea [Recovering/Resolving]
  - Withdrawal syndrome [Recovering/Resolving]
  - Insomnia [Recovering/Resolving]
